FAERS Safety Report 23201705 (Version 1)
Quarter: 2023Q4

REPORT INFORMATION
  Report Type: Spontaneous
  Country: US (occurrence: None)
  Receive Date: 20231118
  Receipt Date: 20231118
  Transmission Date: 20240110
  Serious: No
  Sender: FDA-Public Use
  Company Number: None

PATIENT
  Age: 56 Year
  Sex: Female
  Weight: 112.5 kg

DRUGS (23)
  1. FLECAINIDE ACETATE [Suspect]
     Active Substance: FLECAINIDE ACETATE
     Indication: Atrial fibrillation
     Dosage: 1 TABLET EVERY 12 HOURS ORAL
     Route: 048
     Dates: start: 20231028, end: 20231117
  2. INFLECTRA [Concomitant]
     Active Substance: INFLIXIMAB-DYYB
  3. acetaminaphen [Concomitant]
  4. DIPHENHYDRAMINE [Concomitant]
     Active Substance: DIPHENHYDRAMINE
  5. solu-medrol (solu-cortef) [Concomitant]
  6. ONDANSETRON [Concomitant]
     Active Substance: ONDANSETRON
  7. PANTOPRAZOLE [Concomitant]
     Active Substance: PANTOPRAZOLE
  8. PRADAXA [Concomitant]
     Active Substance: DABIGATRAN ETEXILATE MESYLATE
  9. METFORMIN HYDROCHLORIDE [Concomitant]
     Active Substance: METFORMIN HYDROCHLORIDE
  10. MERCAPTOPURINE [Concomitant]
     Active Substance: MERCAPTOPURINE
  11. ATORVASTATIN [Concomitant]
     Active Substance: ATORVASTATIN
  12. MONTELUKAST [Concomitant]
     Active Substance: MONTELUKAST SODIUM
  13. CETIRIZINE HYDROCHLORIDE [Concomitant]
     Active Substance: CETIRIZINE HYDROCHLORIDE
  14. FLUTICASONE PROPIONATE [Concomitant]
     Active Substance: FLUTICASONE PROPIONATE
  15. SUPPLEMENTS (VEGAN) MULTIVITAMIN W MINERALS [Concomitant]
  16. VITAMIN D3 [Concomitant]
     Active Substance: CHOLECALCIFEROL
  17. GLUCOSAMINE [Concomitant]
     Active Substance: GLUCOSAMINE
  18. OPM CSL-MSG PLUS [Concomitant]
  19. HAIR AND NAILS SUPPLEMENT [Concomitant]
  20. LUTEIN [Concomitant]
     Active Substance: LUTEIN
  21. VITAMIN B12 [Concomitant]
     Active Substance: CYANOCOBALAMIN
  22. FLAXSEED [Concomitant]
     Active Substance: FLAX SEED
  23. BIOTIN [Concomitant]
     Active Substance: BIOTIN

REACTIONS (8)
  - Throat tightness [None]
  - Muscle tightness [None]
  - Headache [None]
  - Dizziness [None]
  - Feeling hot [None]
  - Tremor [None]
  - Therapy cessation [None]
  - Condition aggravated [None]

NARRATIVE: CASE EVENT DATE: 20231109
